FAERS Safety Report 7009257-4 (Version None)
Quarter: 2010Q3

REPORT INFORMATION
  Report Type: 
  Country: None (occurrence: None)
  Receive Date: 20100923
  Receipt Date: 20100920
  Transmission Date: 20110219
  Serious: Yes (Other)
  Sender: FDA-Public Use
  Company Number: US-BRISTOL-MYERS SQUIBB COMPANY-15294705

PATIENT
  Age: 35 Year
  Sex: Female
  Weight: 82 kg

DRUGS (10)
  1. COUMADIN [Suspect]
     Indication: THROMBOSIS PROPHYLAXIS
     Dosage: 7DAYS
     Route: 048
     Dates: start: 20071130, end: 20071201
  2. HEPARIN SODIUM [Suspect]
     Indication: KNEE ARTHROPLASTY
     Route: 042
     Dates: start: 20071129, end: 20071130
  3. SINGULAIR [Concomitant]
  4. LISINOPRIL [Concomitant]
  5. COMBIVENT [Concomitant]
  6. KLONOPIN [Concomitant]
  7. SOMA [Concomitant]
  8. LORTAB [Concomitant]
  9. PERCOCET [Concomitant]
  10. KLONOPIN [Concomitant]

REACTIONS (16)
  - ABDOMINAL PAIN [None]
  - ANAEMIA [None]
  - ASTHENIA [None]
  - CHEST PAIN [None]
  - CONFUSIONAL STATE [None]
  - DYSPNOEA [None]
  - ERYTHEMA [None]
  - HEADACHE [None]
  - HEART RATE INCREASED [None]
  - HYPERHIDROSIS [None]
  - HYPERTENSION [None]
  - NAUSEA [None]
  - RASH [None]
  - SCAR [None]
  - URTICARIA [None]
  - WHEEZING [None]
